FAERS Safety Report 4399414-8 (Version None)
Quarter: 2004Q3

REPORT INFORMATION
  Report Type: 
  Country: None (occurrence: None)
  Receive Date: 20040712
  Receipt Date: 20040707
  Transmission Date: 20050211
  Serious: Yes (Hospitalization)
  Sender: FDA-Public Use
  Company Number: 04-07-0966

PATIENT
  Age: 30 Year
  Sex: Male

DRUGS (1)
  1. CLOZAPINE - IVAX PHARMACEUTICALS, INC. TABLETS [Suspect]
     Indication: SCHIZOAFFECTIVE DISORDER
     Dosage: 300-600MG QD ORAL
     Route: 048
     Dates: start: 20030801

REACTIONS (6)
  - NEPHROLITHIASIS [None]
  - PANCREATITIS [None]
  - PSYCHOTIC DISORDER [None]
  - SCHIZOAFFECTIVE DISORDER [None]
  - SCHIZOPHRENIA, CATATONIC TYPE [None]
  - TREATMENT NONCOMPLIANCE [None]
